FAERS Safety Report 15214906 (Version 1)
Quarter: 2018Q3

REPORT INFORMATION
  Report Type: Spontaneous
  Country: US (occurrence: US)
  Receive Date: 20180730
  Receipt Date: 20180730
  Transmission Date: 20181010
  Serious: No
  Sender: FDA-Public Use
  Company Number: US-BIOGEN-2018BI00614095

PATIENT
  Sex: Male

DRUGS (3)
  1. TYSABRI [Suspect]
     Active Substance: NATALIZUMAB
     Route: 065
     Dates: start: 20130328, end: 20140321
  2. TYSABRI [Suspect]
     Active Substance: NATALIZUMAB
     Indication: MULTIPLE SCLEROSIS
     Route: 065
     Dates: start: 20120315, end: 20121120
  3. TYSABRI [Suspect]
     Active Substance: NATALIZUMAB
     Dates: start: 20150306, end: 20180221

REACTIONS (3)
  - Nephrolithiasis [Unknown]
  - Depression [Unknown]
  - Back pain [Unknown]
